FAERS Safety Report 10577430 (Version 2)
Quarter: 2016Q3

REPORT INFORMATION
  Report Type: Spontaneous
  Country: IT (occurrence: IT)
  Receive Date: 20141111
  Receipt Date: 20160930
  Transmission Date: 20161109
  Serious: Yes (Life-Threatening, Hospitalization)
  Sender: FDA-Public Use
  Company Number: IT-ELI_LILLY_AND_COMPANY-IT201411002777

PATIENT
  Age: 42 Year
  Sex: Male

DRUGS (3)
  1. ZYPADHERA [Suspect]
     Active Substance: OLANZAPINE PAMOATE
     Indication: MENTAL DISORDER
     Dosage: UNK UNK, MONTHLY (1/M)
     Route: 030
  2. ZYPADHERA [Suspect]
     Active Substance: OLANZAPINE PAMOATE
     Indication: MENTAL DISORDER
  3. ZYPADHERA [Suspect]
     Active Substance: OLANZAPINE PAMOATE
     Indication: SCHIZOPHRENIA

REACTIONS (4)
  - Coma [Recovered/Resolved]
  - Sopor [Not Recovered/Not Resolved]
  - Discomfort [Not Recovered/Not Resolved]
  - Blood pressure diastolic increased [Not Recovered/Not Resolved]

NARRATIVE: CASE EVENT DATE: 20141105
